FAERS Safety Report 16153366 (Version 4)
Quarter: 2019Q2

REPORT INFORMATION
  Report Type: Report from Study
  Country: US (occurrence: US)
  Receive Date: 20190403
  Receipt Date: 20190418
  Transmission Date: 20190711
  Serious: Yes (Hospitalization, Other)
  Sender: FDA-Public Use
  Company Number: US-GILEAD-2019-0400307

PATIENT
  Age: 83 Year
  Sex: Female
  Weight: 68.48 kg

DRUGS (3)
  1. AMBRISENTAN [Suspect]
     Active Substance: AMBRISENTAN
     Indication: PULMONARY HYPERTENSION
     Dosage: 5 MG, QD
     Route: 065
  2. ALEVE [Concomitant]
     Active Substance: NAPROXEN SODIUM
  3. OXYGEN. [Concomitant]
     Active Substance: OXYGEN

REACTIONS (8)
  - Lung disorder [Not Recovered/Not Resolved]
  - Pulmonary hypertension [Not Recovered/Not Resolved]
  - Haemoglobin decreased [Not Recovered/Not Resolved]
  - Asthenia [Not Recovered/Not Resolved]
  - Chronic obstructive pulmonary disease [Not Recovered/Not Resolved]
  - Pneumonia [Not Recovered/Not Resolved]
  - Peripheral swelling [Unknown]
  - Capillary disorder [Not Recovered/Not Resolved]

NARRATIVE: CASE EVENT DATE: 20190329
